FAERS Safety Report 19638663 (Version 2)
Quarter: 2022Q3

REPORT INFORMATION
  Report Type: Spontaneous
  Country: US (occurrence: US)
  Receive Date: 20210729
  Receipt Date: 20220903
  Transmission Date: 20221027
  Serious: Yes (Other)
  Sender: FDA-Public Use
  Company Number: US-SA-2021SA251580

PATIENT
  Age: 62 Year
  Sex: Female

DRUGS (2)
  1. ZANTAC [Suspect]
     Active Substance: RANITIDINE HYDROCHLORIDE
     Indication: Dyspepsia
     Dosage: 150 MG; FREQUENCY: OTHER
     Dates: start: 199602
  2. ZANTAC [Suspect]
     Active Substance: RANITIDINE HYDROCHLORIDE
     Indication: Erosive oesophagitis
     Dosage: 300 MG; FREQUENCY: OTHER
     Dates: end: 202003

REACTIONS (3)
  - Bladder cancer [Unknown]
  - Breast cancer stage IV [Recovering/Resolving]
  - Gallbladder cancer stage II [Recovering/Resolving]

NARRATIVE: CASE EVENT DATE: 20100901
